FAERS Safety Report 24698186 (Version 1)
Quarter: 2024Q4

REPORT INFORMATION
  Report Type: Spontaneous
  Country: KW (occurrence: KW)
  Receive Date: 20241204
  Receipt Date: 20241204
  Transmission Date: 20250115
  Serious: Yes (Other)
  Sender: NOVARTIS
  Company Number: KW-002147023-NVSC2024KW229300

PATIENT
  Age: 38 Year
  Sex: Female

DRUGS (3)
  1. IMATINIB [Suspect]
     Active Substance: IMATINIB
     Indication: Chronic myeloid leukaemia
     Dosage: 400 MG (2L TKI)
     Route: 065
     Dates: start: 20230912
  2. IMATINIB [Suspect]
     Active Substance: IMATINIB
     Dosage: 300 MG (2L TKI)
     Route: 048
  3. LASIX [Concomitant]
     Active Substance: FUROSEMIDE
     Indication: Product used for unknown indication
     Dosage: UNK
     Route: 065

REACTIONS (6)
  - Philadelphia chromosome positive [Unknown]
  - Drug intolerance [Unknown]
  - Weight increased [Unknown]
  - Diarrhoea [Unknown]
  - Hot flush [Unknown]
  - Inappropriate schedule of product administration [Unknown]

NARRATIVE: CASE EVENT DATE: 20240801
